FAERS Safety Report 11998970 (Version 1)
Quarter: 2016Q1

REPORT INFORMATION
  Report Type: Spontaneous
  Country: US (occurrence: None)
  Receive Date: 20160202
  Receipt Date: 20160202
  Transmission Date: 20160526
  Serious: Yes (Hospitalization)
  Sender: FDA-Public Use
  Company Number: None

PATIENT
  Age: 58 Year
  Sex: Male
  Weight: 86.18 kg

DRUGS (19)
  1. NORVASC [Concomitant]
     Active Substance: AMLODIPINE BESYLATE
  2. MAGNESIUM HYDROXIDE (MILK OF MAGNESIA) [Concomitant]
  3. ABIRATERONE [Concomitant]
     Active Substance: ABIRATERONE
  4. METFORMIN (GLUCOPHAGE) [Concomitant]
  5. PANTOPRAZOLE (PROTONIX) [Concomitant]
  6. ZYTIGA [Suspect]
     Active Substance: ABIRATERONE ACETATE
     Indication: PROSTATE CANCER
     Route: 048
     Dates: start: 20150929
  7. BOOST GLUCOSE CONTROL [Concomitant]
  8. CABAZITAXEL 25MG/M2 TEVA [Suspect]
     Active Substance: CABAZITAXEL
     Indication: PROSTATE CANCER
     Dosage: 021 DAYS
     Route: 042
     Dates: start: 20150929
  9. CALCIUM CARBONATE/VITAMIN D3 [Concomitant]
  10. MAGNESOUM CITRATE (CITRATE OF MAGNESIUM) [Concomitant]
  11. MAGNESIUM OXIDE. [Concomitant]
     Active Substance: MAGNESIUM OXIDE
  12. MORPHINE (MS CONTIN) [Concomitant]
  13. PREDNISONE (DELTASONE) [Concomitant]
  14. LOPERAMIIDE (IMODIUM) [Concomitant]
  15. MEGESTROL (MEGACE) [Concomitant]
  16. IBUPROFEN (ADVIL, MOTRIN) [Concomitant]
  17. SENNA-DOCUSATE (SENNA PLUS) [Concomitant]
  18. ROXICODONE [Concomitant]
     Active Substance: OXYCODONE HYDROCHLORIDE
  19. PROCHLORPERAZINE (COMPAZINE) [Concomitant]

REACTIONS (2)
  - Pain [None]
  - Disease progression [None]

NARRATIVE: CASE EVENT DATE: 20160122
